FAERS Safety Report 7649358-0 (Version None)
Quarter: 2011Q3

REPORT INFORMATION
  Report Type: 
  Country: None (occurrence: None)
  Receive Date: 20110727
  Receipt Date: 20110706
  Transmission Date: 20111222
  Serious: Yes (Other)
  Sender: FDA-Public Use
  Company Number: 2011PROUSA00429

PATIENT
  Age: 84 Year
  Sex: Male
  Weight: 73.9 kg

DRUGS (3)
  1. PROVENGE [Suspect]
     Indication: PROSTATE CANCER
     Dosage: 250ML, SINGLE, INTRAVENOUS
     Route: 042
     Dates: start: 20110617, end: 20110617
  2. PROVENGE [Suspect]
     Indication: PROSTATE CANCER
     Dosage: 250ML, SINGLE, INTRAVENOUS
     Route: 042
     Dates: start: 20110603, end: 20110603
  3. PROVENGE [Suspect]

REACTIONS (1)
  - TRANSIENT ISCHAEMIC ATTACK [None]
